FAERS Safety Report 5908407-8 (Version None)
Quarter: 2008Q3

REPORT INFORMATION
  Report Type: 
  Country: None (occurrence: None)
  Receive Date: 20080930
  Receipt Date: 20080922
  Transmission Date: 20090109
  Serious: No
  Sender: FDA-Public Use
  Company Number: US024404

PATIENT
  Age: 31 Year
  Sex: Female

DRUGS (1)
  1. FENTORA [Suspect]
     Indication: BACK PAIN
     Dosage: 600 UG, BUCCAL
     Route: 002
     Dates: start: 20080725

REACTIONS (2)
  - STOMATITIS [None]
  - SURGERY [None]
